FAERS Safety Report 7090785-0 (Version None)
Quarter: 2010Q4

REPORT INFORMATION
  Report Type: 
  Country: None (occurrence: None)
  Receive Date: 20101109
  Receipt Date: 20101105
  Transmission Date: 20110411
  Serious: Yes (Hospitalization, Other)
  Sender: FDA-Public Use
  Company Number: BE-BRISTOL-MYERS SQUIBB COMPANY-15341878

PATIENT
  Age: 57 Year
  Sex: Male
  Weight: 78 kg

DRUGS (5)
  1. CETUXIMAB [Suspect]
     Indication: HEAD AND NECK CANCER
     Dosage: RECENT INF:04JAN2010
     Route: 042
     Dates: start: 20090910, end: 20100104
  2. PLATINOL [Suspect]
     Indication: HEAD AND NECK CANCER
     Route: 042
     Dates: start: 20091214, end: 20100125
  3. OMEPRAZOLE [Concomitant]
     Indication: DYSPEPSIA
     Route: 048
     Dates: start: 20091112, end: 20100121
  4. CALCIUM [Concomitant]
     Indication: SUPPORTIVE CARE
     Route: 048
     Dates: start: 20091112, end: 20100121
  5. MICARDIS HCT [Concomitant]
     Indication: HYPERTENSION
     Dosage: 1DF:40/12.5 UNITS NOT SPECIFIED
     Route: 048
     Dates: start: 20090901

REACTIONS (1)
  - RADIATION SKIN INJURY [None]
